FAERS Safety Report 19114934 (Version 1)
Quarter: 2021Q2

REPORT INFORMATION
  Report Type: Spontaneous
  Country: CH (occurrence: CH)
  Receive Date: 20210408
  Receipt Date: 20210408
  Transmission Date: 20210717
  Serious: Yes (Other)
  Sender: FDA-Public Use
  Company Number: CH-BAXTER-2021BAX007023

PATIENT
  Age: 60 Year
  Sex: Male

DRUGS (8)
  1. METHOTREXATE. [Suspect]
     Active Substance: METHOTREXATE
     Indication: BURKITT^S LYMPHOMA
     Route: 065
  2. DOXIL [Suspect]
     Active Substance: DOXORUBICIN HYDROCHLORIDE
     Indication: BURKITT^S LYMPHOMA
     Route: 065
  3. CYCLOPHOSPHAMIDE. [Suspect]
     Active Substance: CYCLOPHOSPHAMIDE
     Indication: BURKITT^S LYMPHOMA
     Route: 065
  4. RITUXIMAB. [Suspect]
     Active Substance: RITUXIMAB
     Indication: BURKITT^S LYMPHOMA
     Route: 065
  5. CYCLOSPORINE. [Concomitant]
     Active Substance: CYCLOSPORINE
     Indication: PROPHYLAXIS
     Route: 065
  6. MYCOPHENOLIC ACID. [Concomitant]
     Active Substance: MYCOPHENOLIC ACID
     Indication: PROPHYLAXIS
     Route: 065
  7. VINCRISTINE [Suspect]
     Active Substance: VINCRISTINE
     Indication: BURKITT^S LYMPHOMA
     Route: 065
  8. PREDNISONE. [Suspect]
     Active Substance: PREDNISONE
     Indication: BURKITT^S LYMPHOMA
     Route: 065

REACTIONS (3)
  - Anaemia [Recovered/Resolved]
  - Agranulocytosis [Recovered/Resolved]
  - Thrombocytopenia [Recovered/Resolved]
